FAERS Safety Report 6116947-4 (Version None)
Quarter: 2009Q1

REPORT INFORMATION
  Report Type: 
  Country: None (occurrence: None)
  Receive Date: 20090314
  Receipt Date: 20090128
  Transmission Date: 20090719
  Serious: Yes (Hospitalization)
  Sender: FDA-Public Use
  Company Number: PR-ABBOTT-09P-131-0498580-00

PATIENT
  Sex: Female
  Weight: 102.15 kg

DRUGS (7)
  1. HUMIRA [Suspect]
     Indication: PSORIATIC ARTHROPATHY
     Dosage: 1 PEN, EVERY OTHER WEEK
     Dates: start: 20081101, end: 20081201
  2. AMARYL [Concomitant]
     Indication: TYPE 2 DIABETES MELLITUS
     Dosage: 1 TAB
     Route: 048
  3. LASIX [Concomitant]
     Indication: HYPERTENSION
     Route: 048
     Dates: start: 20090101
  4. NORVASC [Concomitant]
     Indication: HYPERTENSION
     Route: 048
     Dates: start: 20090101
  5. IMDUR [Concomitant]
     Indication: HYPERTENSION
     Route: 048
     Dates: start: 20090101
  6. FORADIL [Concomitant]
     Indication: ASTHMA
     Route: 055
     Dates: start: 20090101
  7. ALVESCO MDI [Concomitant]
     Indication: ASTHMA
     Route: 055
     Dates: start: 20090101

REACTIONS (5)
  - ASTHMA [None]
  - BACK PAIN [None]
  - DERMATITIS CONTACT [None]
  - PNEUMONIA [None]
  - SKIN DISCOLOURATION [None]
